FAERS Safety Report 8543846-0 (Version None)
Quarter: 2012Q3

REPORT INFORMATION
  Report Type: 
  Country: None (occurrence: None)
  Receive Date: 20120727
  Receipt Date: 20120720
  Transmission Date: 20120928
  Serious: Yes (Life-Threatening, Hospitalization, Disabling)
  Sender: FDA-Public Use
  Company Number: PT-B.I. PHARMACEUTICALS,INC./RIDGEFIELD-2012-EU-01931PO

PATIENT
  Sex: Female
  Weight: 46 kg

DRUGS (7)
  1. PRADAXA [Suspect]
     Indication: ATRIAL FIBRILLATION
  2. SPIRONOLACTONE [Concomitant]
     Indication: CARDIAC FAILURE CONGESTIVE
     Dosage: 25 MG
     Route: 048
  3. PERIDONPRIL 2 MG [Concomitant]
     Indication: HYPERTENSION
     Dosage: 2 MG
     Route: 048
  4. FUROSEMIDE [Concomitant]
     Indication: CARDIAC FAILURE CONGESTIVE
     Dosage: 80 MG
     Route: 048
  5. AMIODARONE HYDROCHLORIDE [Suspect]
     Indication: CARDIAC FAILURE CONGESTIVE
     Dosage: 171.4286 MG
     Route: 048
  6. DIGOXIN [Concomitant]
     Indication: CARDIAC FAILURE CONGESTIVE
     Dosage: 0.125 MG
     Route: 048
  7. PRADAXA [Suspect]
     Indication: THROMBOSIS PROPHYLAXIS
     Dosage: 150 MG
     Route: 048
     Dates: start: 20110518

REACTIONS (5)
  - PRESYNCOPE [None]
  - MELAENA [None]
  - ANAEMIA [None]
  - RENAL IMPAIRMENT [None]
  - GASTRIC HAEMORRHAGE [None]
